FAERS Safety Report 14277750 (Version 3)
Quarter: 2018Q4

REPORT INFORMATION
  Report Type: Spontaneous
  Country: US (occurrence: US)
  Receive Date: 20171212
  Receipt Date: 20181221
  Transmission Date: 20190204
  Serious: Yes (Other)
  Sender: FDA-Public Use
  Company Number: US-PFIZER INC-2017522055

PATIENT
  Age: 13 Year
  Sex: Female

DRUGS (4)
  1. MAGNESIUM CALCIUM [Concomitant]
     Active Substance: CALCIUM CARBONATE\MAGNESIUM CARBONATE
     Indication: PROPHYLAXIS
     Dosage: UNK
  2. VIT B2 [Concomitant]
     Indication: PROPHYLAXIS
     Dosage: 400 MG, UNK
  3. DEMEROL [Suspect]
     Active Substance: MEPERIDINE HYDROCHLORIDE
     Indication: MIGRAINE
     Dosage: 100 MG/ML, (100MG/ML CARPUJET)
     Dates: start: 1980, end: 201712
  4. DEMEROL [Suspect]
     Active Substance: MEPERIDINE HYDROCHLORIDE
     Dosage: 100 MG/ML, (100MG /ML AMPULE FOR INJECTION)

REACTIONS (8)
  - Pulmonary thrombosis [Unknown]
  - Headache [Unknown]
  - Dry mouth [Unknown]
  - Dehydration [Unknown]
  - Feeling abnormal [Unknown]
  - Product use issue [Unknown]
  - Depressed mood [Unknown]
  - Nausea [Unknown]

NARRATIVE: CASE EVENT DATE: 1980
